FAERS Safety Report 10214407 (Version 1)
Quarter: 2014Q2

REPORT INFORMATION
  Report Type: Spontaneous
  Country: RS (occurrence: RS)
  Receive Date: 20140603
  Receipt Date: 20140603
  Transmission Date: 20141212
  Serious: Yes (Life-Threatening, Hospitalization, Disabling)
  Sender: FDA-Public Use
  Company Number: RS-BAYER-2014-077222

PATIENT
  Age: 57 Year
  Sex: Male
  Weight: 84 kg

DRUGS (5)
  1. ASPIRIN [Suspect]
     Indication: ACUTE MYOCARDIAL INFARCTION
     Dosage: 300 MG, UNK
     Route: 048
     Dates: start: 20140502, end: 20140503
  2. METALYSE [Suspect]
     Indication: ACUTE MYOCARDIAL INFARCTION
     Dosage: 80 MG, ONCE
     Route: 042
     Dates: start: 20140502, end: 20140502
  3. PLAVIX [Suspect]
     Indication: ACUTE MYOCARDIAL INFARCTION
     Dosage: 300 MG, UNK
     Route: 048
     Dates: start: 20140502, end: 20140503
  4. CLEXANE [Concomitant]
     Indication: ACUTE MYOCARDIAL INFARCTION
     Dosage: 0.4 MG, UNK
     Route: 042
     Dates: start: 20140502, end: 20140503
  5. CLEXANE [Concomitant]
     Indication: ACUTE MYOCARDIAL INFARCTION
     Dosage: 0.8 MG, BID
     Route: 058
     Dates: start: 20140502, end: 20140503

REACTIONS (4)
  - Cerebral haemorrhage [Recovering/Resolving]
  - Malaise [Recovering/Resolving]
  - Aphasia [Recovering/Resolving]
  - Paresis [Recovering/Resolving]
